FAERS Safety Report 15973337 (Version 1)
Quarter: 2019Q1

REPORT INFORMATION
  Report Type: Report from Study
  Country: JP (occurrence: JP)
  Receive Date: 20190216
  Receipt Date: 20190216
  Transmission Date: 20190418
  Serious: Yes (Hospitalization, Other)
  Sender: FDA-Public Use
  Company Number: JP-AMGEN-JPNSP2018147464

PATIENT
  Age: 52 Year
  Sex: Male
  Weight: 43.4 kg

DRUGS (8)
  1. ETELCALCETIDE [Suspect]
     Active Substance: ETELCALCETIDE
     Indication: HYPERPARATHYROIDISM SECONDARY
     Dosage: 5 MG, 3 TIMES/WK
     Route: 042
     Dates: start: 20170508, end: 20171205
  2. OXAROL [Concomitant]
     Active Substance: MAXACALCITOL
     Dosage: 7.5 MUG, QD
     Route: 042
  3. PHOSBLOCK [Concomitant]
     Active Substance: FERRIC HYDROXIDE
     Indication: HYPERPHOSPHATAEMIA
     Dosage: 4500 MG, QD
     Route: 048
     Dates: end: 20171001
  4. FOSRENOL [Concomitant]
     Active Substance: LANTHANUM CARBONATE
     Indication: HYPERPHOSPHATAEMIA
     Dosage: 2250 MG, QD
     Route: 048
  5. RIONA [Concomitant]
     Active Substance: FERRIC CITRATE ANHYDROUS
     Indication: HYPERPHOSPHATAEMIA
     Dosage: 250 MG, QD
  6. KIKLIN [Concomitant]
     Active Substance: BIXALOMER
     Dosage: 2250 MG, QD
     Route: 048
     Dates: start: 20171002
  7. ETELCALCETIDE [Suspect]
     Active Substance: ETELCALCETIDE
     Dosage: 7.5 MG, 3 TIMES/WK
     Route: 042
     Dates: start: 20171206, end: 20180206
  8. ETELCALCETIDE [Suspect]
     Active Substance: ETELCALCETIDE
     Dosage: 10 MG, 3 TIMES/WK
     Route: 042
     Dates: start: 20180207, end: 20180402

REACTIONS (3)
  - Shunt stenosis [Recovering/Resolving]
  - Angina pectoris [Recovering/Resolving]
  - Shunt occlusion [Recovering/Resolving]

NARRATIVE: CASE EVENT DATE: 20170604
